FAERS Safety Report 21220607 (Version 1)
Quarter: 2022Q3

REPORT INFORMATION
  Report Type: Spontaneous
  Country: FR (occurrence: FR)
  Receive Date: 20220817
  Receipt Date: 20220817
  Transmission Date: 20221027
  Serious: Yes (Hospitalization)
  Sender: FDA-Public Use
  Company Number: None

PATIENT
  Age: 32 Year
  Sex: Female
  Weight: 54 kg

DRUGS (10)
  1. EPIRUBICIN [Suspect]
     Active Substance: EPIRUBICIN
     Indication: Breast cancer
     Dosage: UNIT DOSE: 152 MG, FREQUENCY TIME- 1 DAY, DURATION-1 DAY
     Dates: start: 20210713, end: 20210713
  2. EPIRUBICIN [Suspect]
     Active Substance: EPIRUBICIN
     Dosage: UNIT DOSE: 152 MG, FREQUENCY TIME- 1 DAY, DURATION-1 DAY
     Dates: start: 20210803, end: 20210803
  3. EPIRUBICIN [Suspect]
     Active Substance: EPIRUBICIN
     Dosage: UNIT DOSE: 152 MG, FREQUENCY TIME- 1 DAY, DURATION-1 DAY
     Dates: start: 20210601, end: 20210601
  4. EPIRUBICIN [Suspect]
     Active Substance: EPIRUBICIN
     Dosage: UNIT DOSE: 152 MG, FREQUENCY TIME- 1 DAY, DURATION-1 DAY
     Dates: start: 20210824, end: 20210824
  5. EPIRUBICIN [Suspect]
     Active Substance: EPIRUBICIN
     Dosage: UNIT DOSE: 152 MG, FREQUENCY TIME- 1 DAY, DURATION-1 DAY
     Dates: start: 20210622, end: 20210622
  6. CYCLOPHOSPHAMIDE [Suspect]
     Active Substance: CYCLOPHOSPHAMIDE
     Indication: Breast cancer
     Dosage: UNIT DOSE: 760 MG, FREQUENCY TIME- 1 DAY, DURATION-1 DAY
     Dates: start: 20210803, end: 20210803
  7. CYCLOPHOSPHAMIDE [Suspect]
     Active Substance: CYCLOPHOSPHAMIDE
     Dosage: UNIT DOSE: 760 MG, FREQUENCY TIME- 1 DAY, DURATION-1 DAY
     Dates: start: 20210713, end: 20210713
  8. CYCLOPHOSPHAMIDE [Suspect]
     Active Substance: CYCLOPHOSPHAMIDE
     Dosage: UNIT DOSE: 760 MG, FREQUENCY TIME- 1 DAY, DURATION-1 DAY
     Dates: start: 20210622, end: 20210622
  9. CYCLOPHOSPHAMIDE [Suspect]
     Active Substance: CYCLOPHOSPHAMIDE
     Dosage: UNIT DOSE: 760 MG, FREQUENCY TIME- 1 DAY, DURATION-1 DAY
     Dates: start: 20210601, end: 20210601
  10. CYCLOPHOSPHAMIDE [Suspect]
     Active Substance: CYCLOPHOSPHAMIDE
     Dosage: UNIT DOSE: 760 MG, FREQUENCY TIME- 1 DAY, DURATION-1 DAY
     Dates: start: 20210824, end: 20210824

REACTIONS (3)
  - Myocardial necrosis marker increased [Recovered/Resolved]
  - Chest pain [Recovered/Resolved]
  - Tachycardia [Recovered/Resolved]

NARRATIVE: CASE EVENT DATE: 20210915
